FAERS Safety Report 10241495 (Version 1)
Quarter: 2014Q2

REPORT INFORMATION
  Report Type: Spontaneous
  Country: US (occurrence: US)
  Receive Date: 20140617
  Receipt Date: 20140617
  Transmission Date: 20141212
  Serious: Yes (Death, Hospitalization, Other)
  Sender: FDA-Public Use
  Company Number: US-PFIZER INC-2014164280

PATIENT
  Age: 64 Year
  Sex: Female
  Weight: 93.42 kg

DRUGS (3)
  1. NEURONTIN [Suspect]
     Dosage: UNK
  2. GEODON [Suspect]
     Dosage: UNK
  3. TAMOXIFEN [Concomitant]
     Dosage: UNK

REACTIONS (9)
  - Death [Fatal]
  - Breast cancer recurrent [Unknown]
  - Metastases to bone [Unknown]
  - Metastases to lung [Unknown]
  - Metastases to liver [Unknown]
  - Metastasis [Unknown]
  - Red blood cell count decreased [Unknown]
  - Asthenia [Unknown]
  - Weight decreased [Unknown]
